FAERS Safety Report 4761847-5 (Version None)
Quarter: 2005Q3

REPORT INFORMATION
  Report Type: 
  Country: None (occurrence: None)
  Receive Date: 20050906
  Receipt Date: 20050825
  Transmission Date: 20060218
  Serious: Yes (Other)
  Sender: FDA-Public Use
  Company Number: ES-ROCHE-415420

PATIENT
  Sex: Female

DRUGS (1)
  1. TORADOL [Suspect]
     Route: 065

REACTIONS (1)
  - MULTI-ORGAN FAILURE [None]
